FAERS Safety Report 8119506-7 (Version None)
Quarter: 2012Q1

REPORT INFORMATION
  Report Type: 
  Country: None (occurrence: None)
  Receive Date: 20120207
  Receipt Date: 20120130
  Transmission Date: 20120608
  Serious: Yes (Hospitalization)
  Sender: FDA-Public Use
  Company Number: PHHO2012IL001863

PATIENT
  Sex: Male
  Weight: 78 kg

DRUGS (3)
  1. PROGRAF [Suspect]
     Indication: RENAL TRANSPLANT
     Dosage: 10 MG, BID
     Route: 048
     Dates: start: 20111101
  2. SIMULECT [Suspect]
     Indication: RENAL TRANSPLANT
     Dosage: UNK
     Route: 042
     Dates: start: 20111101, end: 20111102
  3. MYCOPHENOLIC ACID [Suspect]
     Indication: RENAL TRANSPLANT
     Dosage: 1440 MG, BID
     Route: 048
     Dates: start: 20111101

REACTIONS (3)
  - PYREXIA [None]
  - VOMITING [None]
  - DIARRHOEA [None]
